FAERS Safety Report 23977938 (Version 1)
Quarter: 2024Q2

REPORT INFORMATION
  Report Type: Spontaneous
  Country: US (occurrence: None)
  Receive Date: 20240614
  Receipt Date: 20240614
  Transmission Date: 20240715
  Serious: Yes (Hospitalization)
  Sender: FDA-Public Use
  Company Number: None

PATIENT
  Age: 55 Year
  Weight: 73.2 kg

DRUGS (7)
  1. PANOBINOSTAT [Suspect]
     Active Substance: PANOBINOSTAT
     Dosage: 20 MG ORAL
     Route: 048
     Dates: start: 20240322, end: 20240610
  2. LISINOPRIL [Concomitant]
     Active Substance: LISINOPRIL
  3. PROMETHAZINE [Concomitant]
     Active Substance: PROMETHAZINE HYDROCHLORIDE
  4. TIZANIDINE [Concomitant]
     Active Substance: TIZANIDINE
  5. PANTOPRAZOLE [Concomitant]
     Active Substance: PANTOPRAZOLE
  6. PERCOCET [Concomitant]
     Active Substance: ACETAMINOPHEN\OXYCODONE HYDROCHLORIDE
  7. SERTRALINE [Concomitant]
     Active Substance: SERTRALINE HYDROCHLORIDE

REACTIONS (17)
  - Sickle cell anaemia with crisis [None]
  - Chest pain [None]
  - Headache [None]
  - Neck pain [None]
  - Back pain [None]
  - Drug ineffective [None]
  - Blood bilirubin increased [None]
  - Sickle cell anaemia with crisis [None]
  - Atelectasis [None]
  - Pneumonia [None]
  - Pulmonary mass [None]
  - Left atrial enlargement [None]
  - Pericardial effusion [None]
  - Pulmonary septal thickening [None]
  - Bronchiectasis [None]
  - Interstitial lung disease [None]
  - Bone disorder [None]
